FAERS Safety Report 7334154-4 (Version None)
Quarter: 2011Q1

REPORT INFORMATION
  Report Type: 
  Country: None (occurrence: None)
  Receive Date: 20110307
  Receipt Date: 20100811
  Transmission Date: 20110831
  Serious: Yes (Hospitalization, Other)
  Sender: FDA-Public Use
  Company Number: US-BAYER-201018898NA

PATIENT
  Sex: Female
  Weight: 58.957 kg

DRUGS (19)
  1. BACLOFEN [Concomitant]
     Indication: PRODUCT USED FOR UNKNOWN INDICATION
  2. FLAGYL [Concomitant]
     Indication: PRODUCT USED FOR UNKNOWN INDICATION
  3. OXYCODONE [Concomitant]
     Indication: PRODUCT USED FOR UNKNOWN INDICATION
  4. METHERGINE [Concomitant]
     Indication: PRODUCT USED FOR UNKNOWN INDICATION
  5. LORTAB [Concomitant]
     Indication: PRODUCT USED FOR UNKNOWN INDICATION
  6. FLONASE [Concomitant]
     Indication: PRODUCT USED FOR UNKNOWN INDICATION
  7. XANAX [Concomitant]
     Indication: SLEEP DISORDER
     Dosage: UNK
     Dates: start: 20090101, end: 20100101
  8. CIPROFLOXACIN [Concomitant]
     Indication: PRODUCT USED FOR UNKNOWN INDICATION
  9. ASTELIN [Concomitant]
     Indication: PRODUCT USED FOR UNKNOWN INDICATION
  10. YAZ [Suspect]
     Indication: MENSTRUATION IRREGULAR
  11. CELEXA [Concomitant]
     Indication: ANXIETY
     Dosage: UNK
     Dates: start: 20080101
  12. PHENAZOPYRIDINE HCL TAB [Concomitant]
     Indication: PRODUCT USED FOR UNKNOWN INDICATION
  13. NASACORT [Concomitant]
     Indication: PRODUCT USED FOR UNKNOWN INDICATION
  14. VALTREX [Concomitant]
     Indication: PRODUCT USED FOR UNKNOWN INDICATION
  15. METHYLPREDNISOLONE [Concomitant]
     Indication: PRODUCT USED FOR UNKNOWN INDICATION
  16. YAZ [Suspect]
     Indication: CONTRACEPTION
     Dosage: AS USED DOSE: UNK
     Route: 048
     Dates: start: 20081101, end: 20090506
  17. MECLIZINE [Concomitant]
     Indication: PRODUCT USED FOR UNKNOWN INDICATION
  18. CLINDAMYCIN [Concomitant]
     Indication: PRODUCT USED FOR UNKNOWN INDICATION
  19. PREDNISONE [Concomitant]
     Indication: PRODUCT USED FOR UNKNOWN INDICATION

REACTIONS (2)
  - PULMONARY EMBOLISM [None]
  - ABORTION SPONTANEOUS [None]
